FAERS Safety Report 25759154 (Version 1)
Quarter: 2025Q3

REPORT INFORMATION
  Report Type: Spontaneous
  Country: US (occurrence: US)
  Receive Date: 20250904
  Receipt Date: 20250904
  Transmission Date: 20251021
  Serious: No
  Sender: ROCHE
  Company Number: US-CHEPLA-2025010260

PATIENT
  Sex: Female

DRUGS (6)
  1. GANCICLOVIR [Suspect]
     Active Substance: GANCICLOVIR
     Indication: Human herpesvirus 6 infection
     Route: 065
  2. VALGANCICLOVIR [Suspect]
     Active Substance: VALGANCICLOVIR
     Indication: Human herpesvirus 6 infection
     Route: 065
  3. LEVETIRACETAM [Concomitant]
     Active Substance: LEVETIRACETAM
     Indication: Autoimmune encephalopathy
     Route: 042
  4. LEVETIRACETAM [Concomitant]
     Active Substance: LEVETIRACETAM
     Route: 048
  5. Immunoglobulin [Concomitant]
     Indication: Autoimmune encephalopathy
     Route: 042
  6. Immunoglobulin [Concomitant]
     Route: 042

REACTIONS (2)
  - Off label use [Unknown]
  - No adverse event [Unknown]
